FAERS Safety Report 5484767-X (Version None)
Quarter: 2007Q4

REPORT INFORMATION
  Report Type: 
  Country: None (occurrence: None)
  Receive Date: 20071012
  Receipt Date: 20071004
  Transmission Date: 20080405
  Serious: Yes (Hospitalization, Disabling, Other)
  Sender: FDA-Public Use
  Company Number: BR-PFIZER INC-2007084518

PATIENT
  Sex: Male

DRUGS (4)
  1. LIPITOR [Suspect]
     Route: 048
  2. ALL OTHER THERAPEUTIC PRODUCTS [Concomitant]
     Dates: start: 20050101
  3. SELOZOK [Concomitant]
     Route: 048
     Dates: start: 20050101
  4. CARDIAC THERAPY [Concomitant]
     Route: 048
     Dates: start: 20050101

REACTIONS (3)
  - BURNING SENSATION [None]
  - CORONARY ARTERY BYPASS [None]
  - HYPERTENSION [None]
